FAERS Safety Report 7081590-X (Version None)
Quarter: 2010Q4

REPORT INFORMATION
  Report Type: 
  Country: None (occurrence: None)
  Receive Date: 20101103
  Receipt Date: 20101019
  Transmission Date: 20110411
  Serious: Yes (Other)
  Sender: FDA-Public Use
  Company Number: US-CEPHALON-2010005525

PATIENT
  Sex: Male
  Weight: 58 kg

DRUGS (4)
  1. NUVIGIL [Suspect]
     Indication: SLEEP APNOEA SYNDROME
     Route: 048
     Dates: start: 20100909, end: 20101016
  2. PREVACID [Concomitant]
  3. SIMVASTATIN [Concomitant]
  4. METOPROLOL [Concomitant]

REACTIONS (4)
  - AMNESIA [None]
  - SLUGGISHNESS [None]
  - STARING [None]
  - UNRESPONSIVE TO STIMULI [None]
